FAERS Safety Report 14552856 (Version 1)
Quarter: 2018Q1

REPORT INFORMATION
  Report Type: Report from Study
  Country: GB (occurrence: GB)
  Receive Date: 20180220
  Receipt Date: 20180220
  Transmission Date: 20180509
  Serious: Yes (Death)
  Sender: FDA-Public Use
  Company Number: GB-BAYER-2018-028322

PATIENT
  Age: 95 Year
  Sex: Female

DRUGS (2)
  1. ASPIRIN. [Suspect]
     Active Substance: ASPIRIN
     Dosage: UNK
  2. HEPARIN [Interacting]
     Active Substance: HEPARIN SODIUM
     Dosage: UNK

REACTIONS (8)
  - Drug administration error [Fatal]
  - Drug interaction [None]
  - Labelled drug-drug interaction medication error [Fatal]
  - Atrial fibrillation [Fatal]
  - Cardiac failure congestive [Fatal]
  - Chronic kidney disease [Fatal]
  - Hepatic cirrhosis [Fatal]
  - Duodenal ulcer haemorrhage [Fatal]
